FAERS Safety Report 24953726 (Version 1)
Quarter: 2025Q1

REPORT INFORMATION
  Report Type: Spontaneous
  Country: US (occurrence: US)
  Receive Date: 20250211
  Receipt Date: 20250211
  Transmission Date: 20250408
  Serious: No
  Sender: RECORDATI
  Company Number: US-RECORDATI RARE DISEASE INC.-2024009106

PATIENT

DRUGS (13)
  1. ISTURISA [Suspect]
     Active Substance: OSILODROSTAT PHOSPHATE
     Indication: Pituitary-dependent Cushing^s syndrome
     Dosage: 2 MG, BID (1 MG TABLET)
     Route: 048
     Dates: start: 20241104, end: 202412
  2. LISINOPRIL [Suspect]
     Active Substance: LISINOPRIL
     Indication: Product used for unknown indication
     Dosage: 20 MG, QD, TABLET 20 MG
     Route: 048
     Dates: start: 20241120
  3. SOLIFENACIN SUCCINATE [Concomitant]
     Active Substance: SOLIFENACIN SUCCINATE
     Indication: Product used for unknown indication
     Dosage: 5 MG, QD (ORAL TABLET 5 MG)
     Route: 048
     Dates: start: 20240102
  4. SYNTHROID [Concomitant]
     Active Substance: LEVOTHYROXINE SODIUM
     Indication: Product used for unknown indication
     Dosage: 200 MICROGRAM, QD (ORAL TABLET 200 MCG)
     Route: 048
     Dates: start: 20240102
  5. SYNTHROID [Concomitant]
     Active Substance: LEVOTHYROXINE SODIUM
     Dosage: 25 MICROGRAM, QD (ORAL TABLET 25 MCG)
     Route: 048
     Dates: start: 20240102
  6. LIVALO [Concomitant]
     Active Substance: PITAVASTATIN CALCIUM
     Indication: Product used for unknown indication
     Dosage: 2 MG, QD (ORAL TABLET 2 MG)
     Route: 048
     Dates: start: 20240102
  7. COENZYME Q10 [Concomitant]
     Active Substance: DIETARY SUPPLEMENT\UBIDECARENONE
     Indication: Product used for unknown indication
     Dosage: 100 MG, QD (ORAL CAPSULE 100 MG)
     Route: 048
     Dates: start: 20240102
  8. MAGNESIUM OXIDE [Concomitant]
     Active Substance: MAGNESIUM OXIDE
     Indication: Product used for unknown indication
     Dosage: 400 MG, QD (ORAL TABLET 400 MG)
     Route: 048
     Dates: start: 20240102
  9. FISH OIL [Concomitant]
     Active Substance: FISH OIL
     Indication: Product used for unknown indication
     Dosage: 300 MG, QD (ORAL CAPSULE 300 MG)
     Route: 048
     Dates: start: 20240102
  10. MINERALS\VITAMINS [Concomitant]
     Active Substance: MINERALS\VITAMINS
     Indication: Product used for unknown indication
     Dosage: 1 DOSAGE FORM, QD (1 TABLET)
     Route: 048
     Dates: start: 20240102
  11. ASCORBIC ACID [Concomitant]
     Active Substance: ASCORBIC ACID
     Indication: Product used for unknown indication
     Dosage: 500 MG, QD (ORAL TABLET 500 MG)
     Route: 048
     Dates: start: 20240102
  12. L lysine [Concomitant]
     Indication: Product used for unknown indication
     Dosage: 500 MG, QD (ORAL TABLET 500 MG)
     Route: 048
     Dates: start: 20240102
  13. KETOCONAZOLE [Concomitant]
     Active Substance: KETOCONAZOLE
     Indication: Product used for unknown indication
     Dosage: 200 MG, BID (ORAL TABLET 200 MG)
     Route: 048
     Dates: start: 20240102, end: 20241105

REACTIONS (8)
  - Right atrial enlargement [Not Recovered/Not Resolved]
  - Constipation [Not Recovered/Not Resolved]
  - Hunger [Not Recovered/Not Resolved]
  - Insomnia [Not Recovered/Not Resolved]
  - Blood pressure systolic increased [Not Recovered/Not Resolved]
  - Headache [Not Recovered/Not Resolved]
  - Oedema peripheral [Not Recovered/Not Resolved]
  - Tachycardia [Not Recovered/Not Resolved]

NARRATIVE: CASE EVENT DATE: 20241101
